FAERS Safety Report 7790008-0 (Version None)
Quarter: 2011Q3

REPORT INFORMATION
  Report Type: 
  Country: None (occurrence: None)
  Receive Date: 20110930
  Receipt Date: 20110309
  Transmission Date: 20111222
  Serious: No
  Sender: FDA-Public Use
  Company Number: US-ASTRAZENECA-2011SE13446

PATIENT

DRUGS (1)
  1. ANASTROZOLE [Suspect]
     Route: 048

REACTIONS (5)
  - ADVERSE DRUG REACTION [None]
  - ARTHROPATHY [None]
  - PAIN IN EXTREMITY [None]
  - GAIT DISTURBANCE [None]
  - DRUG HYPERSENSITIVITY [None]
